FAERS Safety Report 23669097 (Version 1)
Quarter: 2024Q1

REPORT INFORMATION
  Report Type: Spontaneous
  Country: US (occurrence: US)
  Receive Date: 20240325
  Receipt Date: 20240325
  Transmission Date: 20240410
  Serious: No
  Sender: FDA-Public Use
  Company Number: US-MYLANLABS-2024M1021148

PATIENT
  Sex: Male
  Weight: 117.93 kg

DRUGS (1)
  1. FENTANYL TRANSDERMAL SYSTEM [Suspect]
     Active Substance: FENTANYL
     Indication: Product used for unknown indication
     Dosage: 100 MICROGRAM
     Route: 062

REACTIONS (3)
  - Withdrawal syndrome [Unknown]
  - Product use issue [Unknown]
  - Product adhesion issue [Unknown]
